FAERS Safety Report 16381095 (Version 1)
Quarter: 2019Q2

REPORT INFORMATION
  Report Type: Spontaneous
  Country: CA (occurrence: CA)
  Receive Date: 20190602
  Receipt Date: 20190602
  Transmission Date: 20190711
  Serious: Yes (Other)
  Sender: FDA-Public Use
  Company Number: CA-009507513-1905CAN013846

PATIENT
  Age: 20 Year
  Sex: Male
  Weight: 90.7 kg

DRUGS (4)
  1. ENALAPRIL MALEATE (+) HYDROCHLOROTHIAZIDE [Concomitant]
     Active Substance: ENALAPRIL MALEATE\HYDROCHLOROTHIAZIDE
  2. NASONEX [Suspect]
     Active Substance: MOMETASONE FUROATE
     Indication: SINUSITIS
     Dosage: 50.0 MICROGRAM, 1EVERY DAY,INTRA-NASAL
     Route: 045
  3. RAMIPRIL. [Concomitant]
     Active Substance: RAMIPRIL
  4. TYLENOL [Concomitant]
     Active Substance: ACETAMINOPHEN

REACTIONS (3)
  - Anosmia [Not Recovered/Not Resolved]
  - Sensory loss [Not Recovered/Not Resolved]
  - Ageusia [Not Recovered/Not Resolved]
